FAERS Safety Report 9939789 (Version 1)
Quarter: 2014Q1

REPORT INFORMATION
  Report Type: Report from Study
  Country: US (occurrence: US)
  Receive Date: 20140303
  Receipt Date: 20140303
  Transmission Date: 20141002
  Serious: No
  Sender: FDA-Public Use
  Company Number: US-ABBVIE-13P-163-1038800-00

PATIENT
  Age: 45 Year
  Sex: Female

DRUGS (11)
  1. HUMIRA [Suspect]
     Indication: PSORIASIS
     Dates: start: 20121121
  2. PROPRANOLOL [Concomitant]
     Indication: BLOOD PRESSURE
  3. NORVASC [Concomitant]
     Indication: BLOOD PRESSURE
  4. PROTONIX [Concomitant]
     Indication: GASTROOESOPHAGEAL REFLUX DISEASE
  5. EFFEXOR [Concomitant]
     Indication: DEPRESSION
  6. MAGNESIUM OXIDE [Concomitant]
     Indication: PRODUCT USED FOR UNKNOWN INDICATION
  7. VITAMIN B [Concomitant]
     Indication: PRODUCT USED FOR UNKNOWN INDICATION
  8. MULTIVITAMIN [Concomitant]
     Indication: PRODUCT USED FOR UNKNOWN INDICATION
  9. CALCIUM [Concomitant]
     Indication: PRODUCT USED FOR UNKNOWN INDICATION
  10. CLOBETASOL [Concomitant]
     Indication: PSORIASIS
  11. DIFLORASONE [Concomitant]
     Indication: PSORIASIS

REACTIONS (1)
  - Inappropriate schedule of drug administration [Recovered/Resolved]
